FAERS Safety Report 17553724 (Version 1)
Quarter: 2020Q1

REPORT INFORMATION
  Report Type: Report from Study
  Country: ES (occurrence: ES)
  Receive Date: 20200317
  Receipt Date: 20200317
  Transmission Date: 20200409
  Serious: Yes (Hospitalization)
  Sender: FDA-Public Use
  Company Number: ES-ELI_LILLY_AND_COMPANY-ES202003004284

PATIENT
  Age: 85 Year
  Sex: Male

DRUGS (2)
  1. TERIPARATIDE [Suspect]
     Active Substance: TERIPARATIDE
     Indication: OSTEOPOROSIS
     Dosage: 20 UG, DAILY
     Route: 058
     Dates: start: 20200217, end: 20200307
  2. TERIPARATIDE [Suspect]
     Active Substance: TERIPARATIDE
     Dosage: 20 UG, DAILY
     Route: 058
     Dates: start: 202003

REACTIONS (11)
  - Fatigue [Unknown]
  - Pollakiuria [Recovering/Resolving]
  - Pulmonary oedema [Unknown]
  - Heart rate decreased [Unknown]
  - Product dose omission [Unknown]
  - Peripheral swelling [Unknown]
  - Cardiac valve disease [Unknown]
  - Blood pressure decreased [Unknown]
  - Dyspnoea [Unknown]
  - Fluid retention [Unknown]
  - Swelling face [Unknown]

NARRATIVE: CASE EVENT DATE: 20200217
